FAERS Safety Report 6929229-5 (Version None)
Quarter: 2010Q3

REPORT INFORMATION
  Report Type: 
  Country: None (occurrence: None)
  Receive Date: 20100817
  Receipt Date: 20100804
  Transmission Date: 20110219
  Serious: Yes (Life-Threatening, Hospitalization)
  Sender: FDA-Public Use
  Company Number: IN-ABBOTT-10P-078-0642254-00

PATIENT
  Age: 20 Year
  Sex: Female
  Weight: 64 kg

DRUGS (5)
  1. KALETRA [Suspect]
     Indication: PROPHYLAXIS AGAINST HIV INFECTION
     Dosage: 200MG/50MG
     Route: 048
     Dates: start: 20100327
  2. FERROUS FUMARATE + VIT B12 + FOLIC ACID [Concomitant]
     Indication: ANAEMIA
     Dosage: 0.3 GRAM/15 MCG/1.5 MG
     Route: 048
     Dates: end: 20100427
  3. ELEMENTAL CALCIUM + VITAMIN D3 [Concomitant]
     Indication: PREGNANCY
     Dosage: 500MG/250MG
     Dates: end: 20100428
  4. MULTI-VITAMIN [Concomitant]
     Indication: PREGNANCY
     Route: 048
     Dates: end: 20100427
  5. LAMIVUDINE + ZIDOVUDINE [Concomitant]
     Indication: HIV INFECTION
     Dosage: 300/150MG
     Route: 048
     Dates: start: 20100327

REACTIONS (6)
  - DRUG EXPOSURE DURING PREGNANCY [None]
  - INTRA-UTERINE DEATH [None]
  - IRON DEFICIENCY ANAEMIA [None]
  - OLIGOHYDRAMNIOS [None]
  - POSTPARTUM HAEMORRHAGE [None]
  - PRE-ECLAMPSIA [None]
